FAERS Safety Report 7383082-7 (Version None)
Quarter: 2011Q1

REPORT INFORMATION
  Report Type: 
  Country: None (occurrence: None)
  Receive Date: 20110330
  Receipt Date: 20110325
  Transmission Date: 20110831
  Serious: No
  Sender: FDA-Public Use
  Company Number: US-PFIZER INC-2011067348

PATIENT
  Sex: Female
  Weight: 70.295 kg

DRUGS (2)
  1. ADVIL COLD AND SINUS [Suspect]
     Indication: COUGH
  2. ADVIL COLD AND SINUS [Suspect]
     Indication: SNEEZING
     Dosage: UNK
     Dates: start: 20110323, end: 20110325

REACTIONS (1)
  - LIP SWELLING [None]
